FAERS Safety Report 6654636-8 (Version None)
Quarter: 2010Q1

REPORT INFORMATION
  Report Type: 
  Country: None (occurrence: None)
  Receive Date: 20100326
  Receipt Date: 20091020
  Transmission Date: 20100710
  Serious: Yes (Other)
  Sender: FDA-Public Use
  Company Number: PHHY2009TW61004

PATIENT

DRUGS (1)
  1. EXJADE [Suspect]
     Dosage: 12 TABLETS, UNK
     Route: 048

REACTIONS (3)
  - CELLULITIS [None]
  - INSOMNIA [None]
  - PAIN [None]
